FAERS Safety Report 24361905 (Version 3)
Quarter: 2024Q4

REPORT INFORMATION
  Report Type: Spontaneous
  Country: US (occurrence: US)
  Receive Date: 20240925
  Receipt Date: 20241003
  Transmission Date: 20250115
  Serious: Yes (Life-Threatening, Hospitalization, Other)
  Sender: SANOFI AVENTIS
  Company Number: US-SA-2024SA275444

PATIENT
  Age: 59 Year
  Sex: Male

DRUGS (6)
  1. OXALIPLATIN [Suspect]
     Active Substance: OXALIPLATIN
     Indication: Colorectal cancer metastatic
     Dosage: UNK UNK, QCY
  2. AMIODARONE HYDROCHLORIDE [Suspect]
     Active Substance: AMIODARONE HYDROCHLORIDE
     Indication: Arrhythmia
     Dosage: UNK
  3. LEUCOVORIN [Suspect]
     Active Substance: LEUCOVORIN\LEUCOVORIN CALCIUM
     Indication: Colorectal cancer metastatic
     Dosage: UNK UNK, QCY
  4. FLUOROURACIL [Suspect]
     Active Substance: FLUOROURACIL
     Indication: Colorectal cancer metastatic
     Dosage: UNK UNK, QCY
  5. KEYTRUDA [Suspect]
     Active Substance: PEMBROLIZUMAB
     Indication: Colorectal cancer metastatic
     Dosage: TRUNCATED COURSE
  6. GRANULOCYTE COLONY-STIMULATING FACTOR NOS [Concomitant]
     Active Substance: GRANULOCYTE COLONY-STIMULATING FACTOR NOS
     Dosage: UNK

REACTIONS (14)
  - Pulmonary ossification [Unknown]
  - Lung consolidation [Unknown]
  - Lung opacity [Unknown]
  - Pleural effusion [Unknown]
  - Respiratory symptom [Unknown]
  - Pulmonary fibrosis [Unknown]
  - Toxicity to various agents [Unknown]
  - Diffuse alveolar damage [Unknown]
  - Respiratory failure [Unknown]
  - Pneumonia [Unknown]
  - Staphylococcal bacteraemia [Unknown]
  - Pneumonia bacterial [Unknown]
  - Sepsis [Unknown]
  - COVID-19 [Unknown]
